FAERS Safety Report 17674955 (Version 1)
Quarter: 2020Q2

REPORT INFORMATION
  Report Type: Spontaneous
  Country: LT (occurrence: LT)
  Receive Date: 20200416
  Receipt Date: 20200416
  Transmission Date: 20200714
  Serious: Yes (Hospitalization, Disabling, Other)
  Sender: FDA-Public Use
  Company Number: LT-ASTRAZENECA-2020SE49080

PATIENT
  Age: 84 Year
  Sex: Female

DRUGS (9)
  1. MIFLONIDE [Suspect]
     Active Substance: BUDESONIDE
     Indication: PRODUCT USED FOR UNKNOWN INDICATION
     Dosage: 200.0MG UNKNOWN
     Route: 055
  2. SULFASALASIN [Concomitant]
     Active Substance: SULFASALAZINE
     Indication: PRODUCT USED FOR UNKNOWN INDICATION
     Dosage: 500 MG, UNKNOWN
     Dates: start: 2019, end: 2019
  3. OMEP [Suspect]
     Active Substance: OMEPRAZOLE
     Indication: PRODUCT USED FOR UNKNOWN INDICATION
     Dosage: 20.0MG UNKNOWN
     Route: 048
  4. ACC [Suspect]
     Active Substance: ACETYLCYSTEINE
     Indication: HERPES VIRUS INFECTION
     Dosage: UNK
     Route: 065
  5. ACIC [Suspect]
     Active Substance: ACYCLOVIR
     Indication: PRODUCT USED FOR UNKNOWN INDICATION
     Dosage: 400.0MG UNKNOWN
     Route: 065
  6. VALSARTAN AND HYDROCHLOROTHIAZIDE [Suspect]
     Active Substance: HYDROCHLOROTHIAZIDE\VALSARTAN
     Indication: PRODUCT USED FOR UNKNOWN INDICATION
     Dosage: UNK (160/12.5 MG)
     Route: 065
  7. CEFUROXIME. [Suspect]
     Active Substance: CEFUROXIME
     Indication: PRODUCT USED FOR UNKNOWN INDICATION
     Dosage: 500.0MG UNKNOWN
     Route: 065
  8. METHOTREXATE (METHOTREXATE SODIUM) [Suspect]
     Active Substance: METHOTREXATE SODIUM
     Indication: ARTHROPATHY
     Route: 048
     Dates: start: 20191031, end: 20200102
  9. FOLIC ACID. [Concomitant]
     Active Substance: FOLIC ACID
     Indication: PRODUCT USED FOR UNKNOWN INDICATION
     Dosage: UNK
     Dates: start: 20191031

REACTIONS (24)
  - Blindness unilateral [Not Recovered/Not Resolved]
  - Pneumonia [Unknown]
  - Vomiting [Unknown]
  - Dizziness [Unknown]
  - Arthralgia [Unknown]
  - Bronchitis chronic [Not Recovered/Not Resolved]
  - Diarrhoea [Unknown]
  - Eye infection [Unknown]
  - Productive cough [Unknown]
  - Visual impairment [Unknown]
  - Bronchitis [Not Recovered/Not Resolved]
  - Eye disorder [Unknown]
  - Asthenia [Unknown]
  - Memory impairment [Unknown]
  - Rash [Unknown]
  - Skin exfoliation [Unknown]
  - Nasopharyngitis [Unknown]
  - Somnambulism [Unknown]
  - Intraocular pressure test abnormal [Not Recovered/Not Resolved]
  - Nausea [Unknown]
  - Gait inability [Unknown]
  - Insomnia [Not Recovered/Not Resolved]
  - Nasal congestion [Unknown]
  - Eczema [Unknown]

NARRATIVE: CASE EVENT DATE: 201911
